FAERS Safety Report 7213502-X (Version None)
Quarter: 2011Q1

REPORT INFORMATION
  Report Type: 
  Country: None (occurrence: None)
  Receive Date: 20110106
  Receipt Date: 20101224
  Transmission Date: 20110831
  Serious: Yes (Other)
  Sender: FDA-Public Use
  Company Number: PHHY2010TR88147

PATIENT
  Age: 33 Year
  Sex: Female

DRUGS (2)
  1. ORNIDAZOLE [Suspect]
     Indication: VAGINAL INFECTION
     Dosage: 500 MG, BID
  2. DOXYCYCLINE [Suspect]
     Indication: VAGINAL INFECTION
     Dosage: 500 MG, UNK

REACTIONS (5)
  - ABDOMINAL PAIN [None]
  - GASTROINTESTINAL SOUNDS ABNORMAL [None]
  - PANCREATITIS ACUTE [None]
  - NAUSEA [None]
  - ABDOMINAL PAIN UPPER [None]
